FAERS Safety Report 16356361 (Version 1)
Quarter: 2019Q2

REPORT INFORMATION
  Report Type: Report from Study
  Country: IN (occurrence: IN)
  Receive Date: 20190527
  Receipt Date: 20190527
  Transmission Date: 20190711
  Serious: Yes (Death, Other)
  Sender: FDA-Public Use
  Company Number: IN-ROCHE-2323643

PATIENT

DRUGS (5)
  1. VINCRISTINE [Suspect]
     Active Substance: VINCRISTINE
     Indication: CENTRAL NERVOUS SYSTEM LYMPHOMA
     Route: 065
  2. RITUXIMAB. [Suspect]
     Active Substance: RITUXIMAB
     Indication: CENTRAL NERVOUS SYSTEM LYMPHOMA
     Route: 065
  3. LEUCOVORIN [FOLINIC ACID] [Concomitant]
     Active Substance: LEUCOVORIN
     Indication: PRODUCT USED FOR UNKNOWN INDICATION
     Route: 065
  4. PROCARBAZINE [Suspect]
     Active Substance: PROCARBAZINE
     Indication: CENTRAL NERVOUS SYSTEM LYMPHOMA
     Route: 065
  5. METHOTREXATE. [Suspect]
     Active Substance: METHOTREXATE
     Indication: CENTRAL NERVOUS SYSTEM LYMPHOMA
     Route: 065

REACTIONS (3)
  - Toxicity to various agents [Fatal]
  - Hydrocephalus [Recovering/Resolving]
  - Neurotoxicity [Unknown]
